FAERS Safety Report 9361861 (Version 1)
Quarter: 2013Q2

REPORT INFORMATION
  Report Type: Other
  Country: US (occurrence: US)
  Receive Date: 20130621
  Receipt Date: 20130621
  Transmission Date: 20140414
  Serious: Yes (Hospitalization, Other)
  Sender: FDA-Public Use
  Company Number: US-ACTELION-A-CH2013-84598

PATIENT
  Age: 25 Year
  Sex: Female

DRUGS (1)
  1. TRACLEER [Suspect]
     Indication: PULMONARY ARTERIAL HYPERTENSION
     Route: 048

REACTIONS (5)
  - Dyspnoea [Unknown]
  - Caesarean section [Recovered/Resolved]
  - Pregnancy [Recovered/Resolved]
  - Premature baby [Unknown]
  - Hypotension [Recovered/Resolved]
